FAERS Safety Report 8350618-9 (Version None)
Quarter: 2012Q2

REPORT INFORMATION
  Report Type: 
  Country: None (occurrence: None)
  Receive Date: 20120510
  Receipt Date: 20120427
  Transmission Date: 20120825
  Serious: Yes (Hospitalization)
  Sender: FDA-Public Use
  Company Number: FR-ELI_LILLY_AND_COMPANY-FR201204009598

PATIENT
  Sex: Male

DRUGS (2)
  1. TAXOTERE [Concomitant]
     Indication: LUNG ADENOCARCINOMA
     Dosage: UNK
     Route: 042
     Dates: start: 20090401, end: 20090401
  2. GEMZAR [Suspect]
     Indication: LUNG ADENOCARCINOMA
     Dosage: UNK
     Route: 042
     Dates: start: 20090401, end: 20090401

REACTIONS (3)
  - BONE MARROW FAILURE [None]
  - PYREXIA [None]
  - HEMIPARESIS [None]
